FAERS Safety Report 10674354 (Version 4)
Quarter: 2015Q4

REPORT INFORMATION
  Report Type: Report from Study
  Country: FI (occurrence: FI)
  Receive Date: 20141224
  Receipt Date: 20151012
  Transmission Date: 20160304
  Serious: No
  Sender: FDA-Public Use
  Company Number: FI-UCBSA-2014021648

PATIENT
  Age: 55 Year
  Sex: Female
  Weight: 77 kg

DRUGS (5)
  1. PANADOL [Concomitant]
     Active Substance: ACETAMINOPHEN
     Indication: MIGRAINE
     Dosage: 500 MG, AS NEEDED (PRN)
     Route: 048
     Dates: start: 1969
  2. EXFORGE [Concomitant]
     Active Substance: AMLODIPINE BESYLATE\VALSARTAN
     Indication: HYPERTENSION
     Dosage: 10/160 MG, ONCE DAILY (QD)
     Route: 048
     Dates: start: 2010
  3. EMCONCOR COMP [Concomitant]
     Indication: HYPERTENSION
     Dosage: 5MG/12.5 MG, ONCE DAILY (QD)
     Route: 048
     Dates: start: 2010
  4. LACOSAMIDE EP [Suspect]
     Active Substance: LACOSAMIDE
     Indication: EPILEPSY
     Dosage: UNK
     Route: 048
     Dates: start: 20130502
  5. BURANA [Concomitant]
     Active Substance: IBUPROFEN
     Indication: MIGRAINE
     Dosage: 600 MG, AS NEEDED (PRN)
     Route: 048
     Dates: start: 1969

REACTIONS (1)
  - Syncope [Recovered/Resolved]

NARRATIVE: CASE EVENT DATE: 20140731
